FAERS Safety Report 7888524-6 (Version None)
Quarter: 2011Q4

REPORT INFORMATION
  Report Type: 
  Country: None (occurrence: None)
  Receive Date: 20111101
  Receipt Date: 20111018
  Transmission Date: 20120403
  Serious: Yes (Life-Threatening)
  Sender: FDA-Public Use
  Company Number: JP-2011-11480

PATIENT
  Age: 80 Year
  Sex: Female

DRUGS (6)
  1. DIART (AZOSEMIDE) [Concomitant]
  2. EVISTA [Concomitant]
  3. WARFARIN SODIUM [Concomitant]
  4. AMIODIN (AMLODIPINE BESILATE) [Concomitant]
  5. VESICARE [Concomitant]
  6. SAMSCA [Suspect]
     Indication: CARDIAC FAILURE
     Dosage: 7.5 MG MILLIGRAM(S), QD, ORAL
     Route: 048
     Dates: start: 20110906

REACTIONS (3)
  - VENTRICULAR TACHYCARDIA [None]
  - VENTRICULAR FIBRILLATION [None]
  - BLOOD PRESSURE DECREASED [None]
